FAERS Safety Report 14431662 (Version 1)
Quarter: 2018Q1

REPORT INFORMATION
  Report Type: Spontaneous
  Country: CN (occurrence: CN)
  Receive Date: 20180124
  Receipt Date: 20180124
  Transmission Date: 20180509
  Serious: Yes (Life-Threatening, Other)
  Sender: FDA-Public Use
  Company Number: CN-BAYER-2018-006451

PATIENT
  Age: 49 Year
  Sex: Male

DRUGS (1)
  1. AVELOX [Suspect]
     Active Substance: MOXIFLOXACIN HYDROCHLORIDE
     Indication: NASOPHARYNGITIS
     Dosage: UNK
     Route: 048
     Dates: start: 201801

REACTIONS (11)
  - Product use in unapproved indication [None]
  - Hypersensitivity [Recovering/Resolving]
  - Loss of consciousness [Recovering/Resolving]
  - Rash erythematous [Recovering/Resolving]
  - Dizziness [Recovering/Resolving]
  - Asthenia [Recovering/Resolving]
  - Neuromyopathy [Recovering/Resolving]
  - Seizure [Recovering/Resolving]
  - Diarrhoea [Recovering/Resolving]
  - Off label use [None]
  - Vomiting [Recovering/Resolving]

NARRATIVE: CASE EVENT DATE: 201801
